FAERS Safety Report 9817345 (Version 1)
Quarter: 2014Q1

REPORT INFORMATION
  Report Type: Report from Study
  Country: PH (occurrence: PH)
  Receive Date: 20140115
  Receipt Date: 20140115
  Transmission Date: 20141002
  Serious: Yes (Death)
  Sender: FDA-Public Use
  Company Number: PH-BAXTER-2014BAX001029

PATIENT
  Age: 59 Year
  Sex: Male

DRUGS (5)
  1. DIANEAL PD2 WITH 1.5% DEXTROSE [Suspect]
     Indication: PERITONEAL DIALYSIS
     Route: 033
     Dates: start: 2012
  2. FOLIC ACID [Concomitant]
     Indication: PRODUCT USED FOR UNKNOWN INDICATION
     Route: 065
  3. AMLODIPINE [Concomitant]
     Indication: PRODUCT USED FOR UNKNOWN INDICATION
     Route: 065
  4. LOSARTAN [Concomitant]
     Indication: PRODUCT USED FOR UNKNOWN INDICATION
     Route: 065
  5. FERROUS SULPHATE [Concomitant]
     Indication: PRODUCT USED FOR UNKNOWN INDICATION
     Route: 065

REACTIONS (1)
  - Cardiac arrest [Fatal]
